FAERS Safety Report 7600285-4 (Version None)
Quarter: 2011Q3

REPORT INFORMATION
  Report Type: 
  Country: None (occurrence: None)
  Receive Date: 20110711
  Receipt Date: 20110629
  Transmission Date: 20111222
  Serious: Yes (Life-Threatening, Hospitalization)
  Sender: FDA-Public Use
  Company Number: US-CELGENEUS-163-C5013-11012379

PATIENT
  Sex: Male
  Weight: 98.972 kg

DRUGS (39)
  1. PREDNISONE [Suspect]
     Indication: PROSTATE CANCER
     Dosage: 5 MILLIGRAM
     Route: 048
     Dates: start: 20101123
  2. PREDNISONE [Suspect]
     Dosage: 10 MILLIGRAM
     Route: 048
     Dates: start: 20110104, end: 20110116
  3. HEPARIN [Concomitant]
     Route: 058
  4. COREG [Concomitant]
     Dosage: 6.25 MILLIGRAM
     Route: 048
     Dates: start: 20110212
  5. HYDROCORTISONE [Concomitant]
     Indication: RASH
     Dosage: AS DIRECTED
     Route: 061
     Dates: start: 20110211
  6. ZOFRAN [Concomitant]
     Indication: NAUSEA
     Dosage: 4 MILLIGRAM
     Route: 048
     Dates: start: 20110211
  7. LENALIDOMIDE [Suspect]
     Dosage: 25 MILLIGRAM
     Route: 048
     Dates: start: 20110104, end: 20110116
  8. ZOMETA [Concomitant]
     Dosage: 3.5 MILLIGRAM
     Route: 051
     Dates: start: 20101114, end: 20101214
  9. AMIODARONE HCL [Concomitant]
     Route: 048
     Dates: start: 20110124
  10. MYCOSTATIN [Concomitant]
     Indication: RASH
     Route: 061
     Dates: start: 20110211
  11. LENALIDOMIDE [Suspect]
     Indication: PROSTATE CANCER
     Dosage: 25 MILLIGRAM
     Route: 048
     Dates: start: 20101123
  12. ZOMETA [Concomitant]
     Dosage: 4 MILLIGRAM
     Route: 051
     Dates: start: 20101001
  13. VITAMIN D [Concomitant]
     Indication: SUPPLEMENTATION THERAPY
     Dosage: 5000 U
     Route: 048
     Dates: start: 20110211
  14. POTASSIUM CHLORIDE [Concomitant]
     Indication: SUPPLEMENTATION THERAPY
     Dosage: 20 MILLIEQUIVALENTS
     Route: 048
     Dates: start: 20110211, end: 20110212
  15. LUPRON [Concomitant]
     Indication: PROSTATE CANCER
     Dosage: 30 MILLIGRAM
     Route: 030
     Dates: start: 20000101
  16. PROCRIT [Concomitant]
     Dosage: 20K
     Route: 058
     Dates: start: 20110211
  17. OXYCONTIN [Concomitant]
     Indication: PAIN
     Dosage: 10 MILLIGRAM
     Route: 048
     Dates: start: 20110211
  18. TRIAMCINOLONE [Concomitant]
     Indication: RASH
     Route: 061
     Dates: start: 20110211
  19. COMPAZINE [Concomitant]
     Indication: NAUSEA
     Dosage: 10 MILLIGRAM
     Route: 048
     Dates: start: 20101113
  20. HYDROCODONE BITARTRATE AND ACETAMINOPHEN [Concomitant]
     Indication: PAIN
     Dosage: 5/500MG
     Route: 048
     Dates: start: 20080101
  21. AMIODARONE HCL [Concomitant]
     Indication: ATRIAL FIBRILLATION
     Dosage: 200 MILLIGRAM
     Route: 048
     Dates: start: 20110211
  22. ZAROXOLYN [Concomitant]
     Dosage: 5 MILLIGRAM
     Route: 048
     Dates: start: 20110211
  23. TYLENOL-500 [Concomitant]
     Indication: PAIN
     Dosage: 325 MILLIGRAM
     Route: 065
     Dates: start: 20110211
  24. VICODIN [Concomitant]
     Indication: PAIN
     Dosage: 1 TABLET
     Route: 048
     Dates: start: 20110211
  25. ALBUTEROL SULFATE AUTOHALER [Concomitant]
     Route: 055
     Dates: start: 20110211
  26. BENADRYL [Concomitant]
     Indication: INSOMNIA
     Dosage: 25 MILLIGRAM
     Route: 048
     Dates: start: 20110215
  27. DOCETAXEL [Suspect]
     Indication: PROSTATE CANCER
     Dosage: 158 MILLIGRAM
     Route: 065
     Dates: start: 20101123
  28. DOCETAXEL [Suspect]
     Dosage: 158 MILLIGRAM
     Route: 065
     Dates: start: 20110104, end: 20110104
  29. SODIUM CHLORIDE [Concomitant]
     Dosage: .9 PERCENT
     Route: 058
  30. OSCAL [Concomitant]
     Indication: SUPPLEMENTATION THERAPY
     Dosage: 500 MILLIGRAM
     Route: 048
     Dates: start: 20110211
  31. PRILOSEC [Concomitant]
     Dosage: 20 MILLIGRAM
     Route: 048
     Dates: start: 20110211
  32. OXYGEN [Concomitant]
     Indication: ACUTE RESPIRATORY FAILURE
     Dosage: 100 PERCENT
     Route: 055
     Dates: start: 20110117
  33. PREDNISONE [Suspect]
     Dosage: 15 MILLIGRAM
     Route: 048
     Dates: start: 20110211
  34. UROXATRAL [Concomitant]
     Route: 065
  35. OMEPRAZOLE [Concomitant]
     Route: 058
  36. 11 MILES MIXTURE [Concomitant]
     Dosage: 1 TABLESPOON
     Route: 048
     Dates: start: 20101127
  37. CALCIUM CARBONATE [Concomitant]
     Indication: SUPPLEMENTATION THERAPY
     Dosage: 650 MILLIGRAM
     Route: 048
     Dates: start: 20110211, end: 20110211
  38. IMODIUM MULTI-SYMPTOM RELIEF [Concomitant]
     Dosage: 1 TABLET
     Route: 048
     Dates: start: 20101127
  39. SODIUM CHLORIDE [Concomitant]
     Route: 048
     Dates: start: 20101123

REACTIONS (5)
  - ATRIAL FIBRILLATION [None]
  - SEPSIS [None]
  - CARDIAC FAILURE CONGESTIVE [None]
  - ACUTE RESPIRATORY FAILURE [None]
  - RENAL FAILURE ACUTE [None]
